FAERS Safety Report 8250298-7 (Version None)
Quarter: 2012Q2

REPORT INFORMATION
  Report Type: 
  Country: None (occurrence: None)
  Receive Date: 20120402
  Receipt Date: 20120323
  Transmission Date: 20120825
  Serious: Yes (Hospitalization)
  Sender: FDA-Public Use
  Company Number: US-ACTELION-A-US2011-57719

PATIENT

DRUGS (6)
  1. CALCIUM CHANNEL BLOCKERS [Concomitant]
  2. EPOPROSTENOL SODIUM [Suspect]
     Dosage: 45 NG/KG, PER MIN
     Route: 042
  3. TRACLEER [Suspect]
     Indication: PULMONARY ARTERIAL HYPERTENSION
     Dosage: 62.5 MG, BID
     Route: 048
  4. SILDENAFIL [Concomitant]
  5. EPOPROSTENOL SODIUM [Suspect]
     Indication: PULMONARY ARTERIAL HYPERTENSION
     Dosage: 42 NG/KG, PER MIN
     Route: 042
     Dates: start: 20110303
  6. OXYGEN [Concomitant]

REACTIONS (6)
  - PERICARDITIS [None]
  - DIZZINESS [None]
  - FLUID RETENTION [None]
  - DEVICE LEAKAGE [None]
  - PERICARDIAL EFFUSION [None]
  - DEVICE ISSUE [None]
